FAERS Safety Report 9496331 (Version 1)
Quarter: 2013Q3

REPORT INFORMATION
  Report Type: Report from Study
  Country: CN (occurrence: CN)
  Receive Date: 20130904
  Receipt Date: 20130904
  Transmission Date: 20140515
  Serious: Yes (Other)
  Sender: FDA-Public Use
  Company Number: CN-ROCHE-1268192

PATIENT
  Sex: 0

DRUGS (3)
  1. CAPECITABINE [Suspect]
     Indication: GASTRIC CANCER
     Dosage: FOR DAY 1-14 (21 DAYS CYCLE)
     Route: 048
  2. DOCETAXEL [Suspect]
     Indication: GASTRIC CANCER
     Dosage: 75 MG/M2 FOR 1HR ON DAY 1 OR 35 MG/M2 FOR 1 HR ON DAY 1 AND DAY 8 (21 DAYS CYCLE)
     Route: 042
  3. DEXAMETHASONE [Concomitant]
     Dosage: GIVEN ONE DAY PRIOR TO ADMINISTRATION OF DOCETAXEL, FOR 3 CONSECUTIVE DAYS
     Route: 065

REACTIONS (4)
  - Neutrophil count decreased [Recovered/Resolved]
  - Haemoglobin decreased [Unknown]
  - Gastrointestinal disorder [Unknown]
  - Palmar-plantar erythrodysaesthesia syndrome [Unknown]
